FAERS Safety Report 8336545-1 (Version None)
Quarter: 2012Q2

REPORT INFORMATION
  Report Type: 
  Country: None (occurrence: None)
  Receive Date: 20120501
  Receipt Date: 20120418
  Transmission Date: 20120825
  Serious: Yes (Other)
  Sender: FDA-Public Use
  Company Number: ALK_02488_2012

PATIENT
  Sex: Female

DRUGS (1)
  1. VIVITROL [Suspect]
     Indication: PRODUCT USED FOR UNKNOWN INDICATION
     Dosage: 380 MG 1/MONTH, INTRAMUSCULAR
     Route: 030
     Dates: start: 20120329

REACTIONS (10)
  - MUSCLE TWITCHING [None]
  - DEPRESSION [None]
  - LOSS OF CONSCIOUSNESS [None]
  - CONSTIPATION [None]
  - HEART RATE INCREASED [None]
  - ANXIETY [None]
  - DEPRESSED MOOD [None]
  - PALPITATIONS [None]
  - DYSPNOEA [None]
  - FEELING JITTERY [None]
